FAERS Safety Report 5652384-4 (Version None)
Quarter: 2008Q1

REPORT INFORMATION
  Report Type: 
  Country: None (occurrence: None)
  Receive Date: 20080305
  Receipt Date: 20080305
  Transmission Date: 20080703
  Serious: No
  Sender: FDA-Public Use
  Company Number: None

PATIENT
  Sex: Male

DRUGS (11)
  1. SORAFENIB [Suspect]
     Indication: HEPATIC NEOPLASM MALIGNANT
     Dosage: 400MG  TWICE DAILY PO
     Route: 048
     Dates: start: 20071121
  2. SORAFENIB [Suspect]
     Indication: HEPATIC NEOPLASM MALIGNANT
     Dosage: 400MG  TWICE DAILY PO
     Route: 048
     Dates: start: 20080115
  3. MAXZIDE [Concomitant]
  4. DOCUSATE NA [Concomitant]
  5. METFORMIN [Concomitant]
  6. AMBIEN [Concomitant]
  7. LOVASTATIN [Concomitant]
  8. TOPROL [Concomitant]
  9. MULTI-VITAMIN [Concomitant]
  10. SELENIUM [Concomitant]
  11. TERAZOSIN HCL [Concomitant]

REACTIONS (4)
  - BLOOD CREATINE PHOSPHOKINASE INCREASED [None]
  - FALL [None]
  - LIVER FUNCTION TEST ABNORMAL [None]
  - MUSCULAR WEAKNESS [None]
